FAERS Safety Report 4725505-5 (Version None)
Quarter: 2005Q3

REPORT INFORMATION
  Report Type: 
  Country: None (occurrence: None)
  Receive Date: 20050727
  Receipt Date: 20050718
  Transmission Date: 20060218
  Serious: Yes (Hospitalization)
  Sender: FDA-Public Use
  Company Number: US-JNJFOC-20050603708

PATIENT
  Sex: Male
  Weight: 70.31 kg

DRUGS (16)
  1. REMICADE [Suspect]
     Route: 042
  2. REMICADE [Suspect]
     Indication: RHEUMATOID ARTHRITIS
     Route: 042
  3. METHOTREXATE SODIUM [Concomitant]
  4. PLAQUENIL [Concomitant]
  5. PLENDIL [Concomitant]
  6. DYAZIDE [Concomitant]
  7. DYAZIDE [Concomitant]
  8. SULINDAC [Concomitant]
  9. FOLATE [Concomitant]
  10. LIPITOR [Concomitant]
  11. ASPIRIN [Concomitant]
  12. LEVOXIL [Concomitant]
  13. CALCITRIOL [Concomitant]
  14. CALCITRIOL [Concomitant]
  15. CALCITRIOL [Concomitant]
  16. POTASSIUM CHLORIDE [Concomitant]

REACTIONS (1)
  - NON-HODGKIN'S LYMPHOMA [None]
